FAERS Safety Report 8172068-0 (Version None)
Quarter: 2012Q1

REPORT INFORMATION
  Report Type: 
  Country: None (occurrence: None)
  Receive Date: 20120228
  Receipt Date: 20120220
  Transmission Date: 20120608
  Serious: Yes (Hospitalization)
  Sender: FDA-Public Use
  Company Number: JP-ASTRAZENECA-2012SE12186

PATIENT
  Age: 73 Year
  Sex: Female

DRUGS (2)
  1. ARIMIDEX [Suspect]
     Indication: BREAST CANCER
     Route: 048
     Dates: start: 20111117, end: 20111222
  2. UFT [Suspect]
     Route: 048
     Dates: start: 20111117, end: 20111215

REACTIONS (1)
  - HEPATIC FUNCTION ABNORMAL [None]
